FAERS Safety Report 7930665-9 (Version None)
Quarter: 2011Q4

REPORT INFORMATION
  Report Type: 
  Country: None (occurrence: None)
  Receive Date: 20111121
  Receipt Date: 20110902
  Transmission Date: 20120403
  Serious: No
  Sender: FDA-Public Use
  Company Number: US-BAYER-2011-087780

PATIENT
  Age: 84 Year
  Sex: Female
  Weight: 68 kg

DRUGS (9)
  1. ALEVE (CAPLET) [Suspect]
     Indication: ANALGESIC THERAPY
     Dosage: 1 DF, ONCE
     Route: 048
     Dates: start: 20110821
  2. IMDUR [Concomitant]
  3. TIAZAC [Concomitant]
  4. CITALOPRAM HYDROBROMIDE [Concomitant]
  5. NEXIUM [Concomitant]
  6. CRESTOR [Concomitant]
  7. PRESERVISION EYE VITAMIN AND MINERAL SUPPL. [Concomitant]
  8. CENTRUM [Concomitant]
  9. ASPIRIN [Concomitant]

REACTIONS (3)
  - MIDDLE INSOMNIA [None]
  - NAUSEA [None]
  - PALPITATIONS [None]
